FAERS Safety Report 18649049 (Version 1)
Quarter: 2020Q4

REPORT INFORMATION
  Report Type: Report from Study
  Country: US (occurrence: US)
  Receive Date: 20201222
  Receipt Date: 20201222
  Transmission Date: 20210114
  Serious: Yes (Death, Other)
  Sender: FDA-Public Use
  Company Number: US-GILEAD-2020-0509982

PATIENT
  Sex: Male

DRUGS (24)
  1. AZTREONAM LYSINE [Suspect]
     Active Substance: AZTREONAM LYSINE
     Indication: CYSTIC FIBROSIS
     Dosage: 75 MG, TID
     Route: 055
     Dates: start: 20180515
  2. AZITHROMYCIN ANHYDROUS. [Concomitant]
     Active Substance: AZITHROMYCIN ANHYDROUS
  3. BACTRIM [Concomitant]
     Active Substance: SULFAMETHOXAZOLE\TRIMETHOPRIM
  4. BIOTIN [Concomitant]
     Active Substance: BIOTIN
  5. CLONIDINE. [Concomitant]
     Active Substance: CLONIDINE
  6. NOVOLOG [Concomitant]
     Active Substance: INSULIN ASPART
  7. PREDNISONE. [Concomitant]
     Active Substance: PREDNISONE
  8. VALCYTE [Concomitant]
     Active Substance: VALGANCICLOVIR HYDROCHLORIDE
  9. DOCUSATE SODIUM. [Concomitant]
     Active Substance: DOCUSATE SODIUM
  10. KALYDECO [Concomitant]
     Active Substance: IVACAFTOR
  11. LANTUS [Concomitant]
     Active Substance: INSULIN GLARGINE
  12. MYCOPHENOLATE [Concomitant]
     Active Substance: MYCOPHENOLIC ACID
  13. PROAIR HFA [Concomitant]
     Active Substance: ALBUTEROL SULFATE
  14. CRESTOR [Concomitant]
     Active Substance: ROSUVASTATIN CALCIUM
  15. MELATONIN [Concomitant]
     Active Substance: MELATONIN
  16. NOXAFIL [Concomitant]
     Active Substance: POSACONAZOLE
  17. VITAMIN B12 [VITAMIN B12 NOS] [Concomitant]
     Active Substance: CYANOCOBALAMIN
  18. OMEPRAZOLE. [Concomitant]
     Active Substance: OMEPRAZOLE
  19. CALCIUM 600 + D [Concomitant]
     Active Substance: CALCIUM\VITAMIN D
  20. CARVEDILOL. [Concomitant]
     Active Substance: CARVEDILOL
  21. LOVAZA [Concomitant]
     Active Substance: OMEGA-3-ACID ETHYL ESTERS
  22. VITAMIN D [VITAMIN D NOS] [Concomitant]
     Active Substance: VITAMIN D NOS
  23. COLISTIMETHATE [Concomitant]
     Active Substance: COLISTIMETHATE SODIUM
  24. MAG OXIDE [Concomitant]
     Active Substance: MAGNESIUM OXIDE

REACTIONS (1)
  - Death [Fatal]
